FAERS Safety Report 21095363 (Version 4)
Quarter: 2022Q4

REPORT INFORMATION
  Report Type: Report from Study
  Country: CO (occurrence: CO)
  Receive Date: 20220718
  Receipt Date: 20221123
  Transmission Date: 20230113
  Serious: Yes (Disabling, Other)
  Sender: FDA-Public Use
  Company Number: CO-BRISTOL-MYERS SQUIBB COMPANY-2022-073191

PATIENT
  Age: 68 Year
  Sex: Female
  Weight: 47 kg

DRUGS (1)
  1. ORENCIA [Suspect]
     Active Substance: ABATACEPT
     Indication: Rheumatoid arthritis
     Dosage: ROUTE OF ADMINISTRATION- ENDOVENOUS
     Route: 042
     Dates: start: 20190119

REACTIONS (12)
  - Vomiting [Recovering/Resolving]
  - Diarrhoea [Recovering/Resolving]
  - Blood pressure increased [Recovering/Resolving]
  - Joint swelling [Recovering/Resolving]
  - Depression [Recovering/Resolving]
  - Syncope [Recovering/Resolving]
  - Arthralgia [Not Recovered/Not Resolved]
  - Arthritis [Unknown]
  - Musculoskeletal pain [Unknown]
  - Abdominal rigidity [Unknown]
  - Pelvic pain [Unknown]
  - Discharge [Unknown]

NARRATIVE: CASE EVENT DATE: 20220709
